FAERS Safety Report 8032825-8 (Version None)
Quarter: 2012Q1

REPORT INFORMATION
  Report Type: 
  Country: None (occurrence: None)
  Receive Date: 20120110
  Receipt Date: 20120104
  Transmission Date: 20120608
  Serious: Yes (Death, Other)
  Sender: FDA-Public Use
  Company Number: AU-B.I. PHARMACEUTICALS,INC./RIDGEFIELD-2011-AU-02091AU

PATIENT
  Sex: Female
  Weight: 75 kg

DRUGS (12)
  1. PRADAXA [Suspect]
     Indication: ATRIAL FIBRILLATION
     Dosage: 300 MG
     Dates: end: 20110921
  2. METOPROLOL SUCCINATE [Concomitant]
     Dosage: 100 MG
  3. RAMIPRIL [Concomitant]
     Dosage: 10 MG
  4. INDAPAMIDE [Concomitant]
     Dosage: 1.5 MG
  5. ESOMEPRAZOLE SODIUM [Concomitant]
     Dosage: 20 MG
  6. DOTHIEPIN HYDROCHLORIDE [Concomitant]
     Dosage: 50 MG
  7. DIGOXIN [Concomitant]
     Dosage: 125 MG
  8. GLICLAZIDE [Concomitant]
     Dosage: 90 MG
  9. FELODIPINE [Concomitant]
     Dosage: 2.5 MG
  10. ACETAMINOPHEN [Concomitant]
     Dosage: 4 G
  11. FENOFIBRATE [Concomitant]
     Dosage: 145 MG
  12. METAMUCIL-2 [Concomitant]

REACTIONS (5)
  - ABDOMINAL SEPSIS [None]
  - INTESTINAL PERFORATION [None]
  - PROCEDURAL HAEMORRHAGE [None]
  - MULTI-ORGAN FAILURE [None]
  - ABDOMINAL PAIN [None]
